FAERS Safety Report 6832166-8 (Version None)
Quarter: 2010Q3

REPORT INFORMATION
  Report Type: 
  Country: None (occurrence: None)
  Receive Date: 20100712
  Receipt Date: 20100628
  Transmission Date: 20110219
  Serious: Yes (Other)
  Sender: FDA-Public Use
  Company Number: PHHY2010US42389

PATIENT
  Age: 63 Year
  Sex: Female

DRUGS (3)
  1. GLEEVEC [Suspect]
     Indication: CHRONIC MYELOID LEUKAEMIA
     Dosage: UNK
  2. NAPROXEN [Suspect]
     Dosage: UNK
  3. ESTROGEN [Concomitant]

REACTIONS (3)
  - BLISTER [None]
  - PSEUDOPORPHYRIA [None]
  - SKIN FRAGILITY [None]
